FAERS Safety Report 5388054-X (Version None)
Quarter: 2007Q3

REPORT INFORMATION
  Report Type: 
  Country: None (occurrence: None)
  Receive Date: 20070716
  Receipt Date: 20070704
  Transmission Date: 20080115
  Serious: Yes (Other)
  Sender: FDA-Public Use
  Company Number: BR-ROCHE-469081

PATIENT
  Age: 33 Year
  Sex: Female
  Weight: 62 kg

DRUGS (1)
  1. RIVOTRIL [Suspect]
     Indication: PANIC ATTACK
     Route: 048
     Dates: start: 20030101

REACTIONS (1)
  - ABORTION SPONTANEOUS [None]
